FAERS Safety Report 6221128-X (Version None)
Quarter: 2009Q2

REPORT INFORMATION
  Report Type: 
  Country: None (occurrence: None)
  Receive Date: 20090610
  Receipt Date: 20090604
  Transmission Date: 20091009
  Serious: Yes (Hospitalization)
  Sender: FDA-Public Use
  Company Number: B0578214A

PATIENT
  Sex: Male

DRUGS (3)
  1. AUGMENTIN [Suspect]
     Indication: PROPHYLAXIS
     Route: 065
     Dates: start: 20081208, end: 20081215
  2. PARACETAMOL [Concomitant]
     Indication: DRUG USE FOR UNKNOWN INDICATION
     Route: 048
  3. FE [Concomitant]
     Indication: DRUG USE FOR UNKNOWN INDICATION

REACTIONS (5)
  - BILIRUBIN URINE [None]
  - CHROMATURIA [None]
  - DRUG TOXICITY [None]
  - HYPERBILIRUBINAEMIA [None]
  - JAUNDICE [None]
